FAERS Safety Report 14753196 (Version 1)
Quarter: 2018Q2

REPORT INFORMATION
  Report Type: Spontaneous
  Country: US (occurrence: US)
  Receive Date: 20180412
  Receipt Date: 20180412
  Transmission Date: 20180711
  Serious: No
  Sender: FDA-Public Use
  Company Number: US-ALEXION PHARMACEUTICALS INC.-A201803907

PATIENT
  Sex: Female

DRUGS (3)
  1. SOLIRIS [Suspect]
     Active Substance: ECULIZUMAB
     Indication: ATYPICAL HAEMOLYTIC URAEMIC SYNDROME
     Dosage: UNK, UNK, QW
     Route: 065
  2. SOLIRIS [Suspect]
     Active Substance: ECULIZUMAB
     Dosage: UNK, UNK, QW
  3. SOLIRIS [Suspect]
     Active Substance: ECULIZUMAB
     Dosage: UNK, UNK, Q2W
     Route: 065

REACTIONS (2)
  - Disease progression [Unknown]
  - Inappropriate schedule of drug administration [Not Recovered/Not Resolved]
